FAERS Safety Report 4682415-X (Version None)
Quarter: 2005Q2

REPORT INFORMATION
  Report Type: 
  Country: None (occurrence: None)
  Receive Date: 20050602
  Receipt Date: 20050506
  Transmission Date: 20051028
  Serious: No
  Sender: FDA-Public Use
  Company Number: USA050495370

PATIENT
  Age: 38 Year
  Sex: Male

DRUGS (3)
  1. CYMBALTA [Suspect]
     Dosage: 30 MG DAY
     Dates: start: 20050406
  2. MS CONTIN [Concomitant]
  3. KLONOPIN [Concomitant]

REACTIONS (4)
  - DYSARTHRIA [None]
  - FEELING DRUNK [None]
  - INCOHERENT [None]
  - THINKING ABNORMAL [None]
